FAERS Safety Report 11173467 (Version 1)
Quarter: 2015Q2

REPORT INFORMATION
  Report Type: Spontaneous
  Country: US (occurrence: US)
  Receive Date: 20150609
  Receipt Date: 20150609
  Transmission Date: 20150821
  Serious: No
  Sender: FDA-Public Use
  Company Number: US-ASTRAZENECA-2015SE52449

PATIENT
  Age: 65 Year
  Sex: Male

DRUGS (6)
  1. VIEKIRA PAK [Interacting]
     Active Substance: DASABUVIR\OMBITASVIR\PARITAPREVIR\RITONAVIR
     Indication: HEPATITIS C
     Route: 048
     Dates: start: 20150429
  2. OXYCODONE [Concomitant]
     Active Substance: OXYCODONE
     Indication: BREAKTHROUGH PAIN
  3. RIBAVIRIN. [Concomitant]
     Active Substance: RIBAVIRIN
  4. NEXIUM [Suspect]
     Active Substance: ESOMEPRAZOLE MAGNESIUM
     Route: 048
  5. FENTANYL. [Interacting]
     Active Substance: FENTANYL
     Indication: PAIN
     Route: 062
  6. GABAPENTIN. [Interacting]
     Active Substance: GABAPENTIN
     Indication: PAIN
     Route: 048

REACTIONS (13)
  - Amnesia [Unknown]
  - Pruritus [Unknown]
  - Hyperhidrosis [Unknown]
  - Nausea [Unknown]
  - Fatigue [Unknown]
  - Irritability [Unknown]
  - Vision blurred [Unknown]
  - Flushing [Unknown]
  - Disturbance in attention [Unknown]
  - Drug interaction [Unknown]
  - Balance disorder [Unknown]
  - Anxiety [Unknown]
  - Insomnia [Unknown]

NARRATIVE: CASE EVENT DATE: 201504
